FAERS Safety Report 4708235-5 (Version None)
Quarter: 2005Q3

REPORT INFORMATION
  Report Type: 
  Country: None (occurrence: None)
  Receive Date: 20050707
  Receipt Date: 20050623
  Transmission Date: 20060218
  Serious: Yes (Hospitalization)
  Sender: FDA-Public Use
  Company Number: US-JNJFOC-20050700646

PATIENT
  Sex: Female
  Weight: 64.86 kg

DRUGS (2)
  1. MOTRIN [Suspect]
     Indication: BACK PAIN
  2. BEXTRA [Suspect]
     Indication: BACK PAIN

REACTIONS (3)
  - GASTRITIS [None]
  - NAUSEA [None]
  - SURGERY [None]
